FAERS Safety Report 26126122 (Version 1)
Quarter: 2025Q4

REPORT INFORMATION
  Report Type: Other
  Country: CN (occurrence: CN)
  Receive Date: 20251205
  Receipt Date: 20251205
  Transmission Date: 20260118
  Serious: Yes (Other)
  Sender: Phathom Pharmaceuticals
  Company Number: CN-PHATHOM PHARMACEUTICALS INC.-2025PHT03516

PATIENT
  Age: 33 Year
  Sex: Male
  Weight: 60 kg

DRUGS (3)
  1. VONOPRAZAN [Suspect]
     Active Substance: VONOPRAZAN
     Indication: Gastrooesophageal reflux disease
     Dosage: 20 MG, 2X/DAY
     Route: 048
     Dates: start: 20251114, end: 20251114
  2. VONOPRAZAN [Suspect]
     Active Substance: VONOPRAZAN
     Dosage: 20 MG, 2X/DAY
     Route: 048
     Dates: start: 20251114, end: 20251114
  3. AMOXICILLIN TRIHYDRATE [Suspect]
     Active Substance: AMOXICILLIN
     Indication: Gastrooesophageal reflux disease
     Dosage: 1 G, 3X/DAY
     Route: 048
     Dates: start: 20251114, end: 20251114

REACTIONS (1)
  - Dermatitis [Recovering/Resolving]

NARRATIVE: CASE EVENT DATE: 20251114
